FAERS Safety Report 17413785 (Version 1)
Quarter: 2020Q1

REPORT INFORMATION
  Report Type: Spontaneous
  Country: US (occurrence: US)
  Receive Date: 20200213
  Receipt Date: 20200213
  Transmission Date: 20200409
  Serious: No
  Sender: FDA-Public Use
  Company Number: None

PATIENT
  Age: 47 Year
  Sex: Female
  Weight: 79.65 kg

DRUGS (7)
  1. CYTOMEL [Concomitant]
     Active Substance: LIOTHYRONINE SODIUM
  2. AIMOVIG [Suspect]
     Active Substance: ERENUMAB-AOOE
     Indication: MIGRAINE PROPHYLAXIS
     Dates: start: 20190626
  3. TYROSINT [Concomitant]
  4. VITAMIN D [Concomitant]
     Active Substance: VITAMIN D NOS
  5. RIBOFLAVIN [Concomitant]
     Active Substance: RIBOFLAVIN
  6. MAXALT [Concomitant]
     Active Substance: RIZATRIPTAN BENZOATE
  7. MAGNESIUM [Concomitant]
     Active Substance: MAGNESIUM

REACTIONS (2)
  - Blood pressure increased [None]
  - Amenorrhoea [None]

NARRATIVE: CASE EVENT DATE: 20190808
